FAERS Safety Report 13185489 (Version 1)
Quarter: 2017Q1

REPORT INFORMATION
  Report Type: Spontaneous
  Country: US (occurrence: US)
  Receive Date: 20170203
  Receipt Date: 20170203
  Transmission Date: 20170428
  Serious: Yes (Hospitalization, Other)
  Sender: FDA-Public Use
  Company Number: US-DSJP-DSU-2016-136158

PATIENT

DRUGS (4)
  1. BENICAR [Suspect]
     Active Substance: OLMESARTAN MEDOXOMIL
     Indication: HYPERTENSION
     Dosage: 20 MG, QD
     Dates: start: 2005
  2. BENICAR HCT [Suspect]
     Active Substance: HYDROCHLOROTHIAZIDE\OLMESARTAN MEDOXOMIL
     Dosage: 40/25 MG, QD
  3. BENICAR HCT [Suspect]
     Active Substance: HYDROCHLOROTHIAZIDE\OLMESARTAN MEDOXOMIL
     Indication: HYPERTENSION
     Dosage: 40/12.5 MG, UNK
     Dates: start: 2004, end: 200903
  4. BENICAR HCT [Suspect]
     Active Substance: HYDROCHLOROTHIAZIDE\OLMESARTAN MEDOXOMIL
     Dosage: 20/12.5 MG, UNK

REACTIONS (18)
  - Proctitis [Unknown]
  - Haematuria [Unknown]
  - Hypokalaemia [Unknown]
  - Dizziness [Unknown]
  - Irritable bowel syndrome [Not Recovered/Not Resolved]
  - Gastroenteritis viral [Not Recovered/Not Resolved]
  - Gastric disorder [Unknown]
  - Hyponatraemia [Unknown]
  - Diverticulitis [Not Recovered/Not Resolved]
  - Colon adenoma [Unknown]
  - Weight decreased [Unknown]
  - Diverticulum intestinal haemorrhagic [Recovering/Resolving]
  - Rectal haemorrhage [Not Recovered/Not Resolved]
  - Barrett^s oesophagus [Unknown]
  - Haemorrhoids [Not Recovered/Not Resolved]
  - Rectal injury [Unknown]
  - Diverticulum [Unknown]
  - Hypovitaminosis [Unknown]

NARRATIVE: CASE EVENT DATE: 2005
